FAERS Safety Report 10180113 (Version 1)
Quarter: 2014Q2

REPORT INFORMATION
  Report Type: Spontaneous
  Country: US (occurrence: US)
  Receive Date: 20140519
  Receipt Date: 20140519
  Transmission Date: 20141212
  Serious: No
  Sender: FDA-Public Use
  Company Number: US-AMGEN INC.-USASP2013077115

PATIENT
  Age: 69 Year
  Sex: Female

DRUGS (5)
  1. PROLIA [Suspect]
     Indication: OSTEOPOROSIS POSTMENOPAUSAL
     Dosage: UNK
     Route: 065
  2. PREDNISONE [Concomitant]
  3. SYNTHROID [Concomitant]
     Dosage: 120 MUG, UNK
  4. CALCIUM                            /00060701/ [Concomitant]
  5. VITAMIN D                          /00107901/ [Concomitant]

REACTIONS (4)
  - Throat irritation [Unknown]
  - Aphonia [Unknown]
  - Ear pain [Unknown]
  - Gastrooesophageal reflux disease [Unknown]
